FAERS Safety Report 6722606-7 (Version None)
Quarter: 2010Q2

REPORT INFORMATION
  Report Type: 
  Country: None (occurrence: None)
  Receive Date: 20100512
  Receipt Date: 20100430
  Transmission Date: 20101027
  Serious: Yes (Other)
  Sender: FDA-Public Use
  Company Number: JP-PFIZER INC-2010058685

PATIENT
  Age: 35 Year
  Sex: Male

DRUGS (4)
  1. ZOLOFT [Suspect]
     Indication: DEPRESSION
     Dosage: 100MG/DAY
     Route: 048
  2. DESYREL [Interacting]
     Indication: DEPRESSION
     Dosage: 50MG/DAY
     Route: 048
  3. SEDIEL [Interacting]
     Indication: ANXIETY
     Dosage: 10MG/DAY
     Route: 048
  4. ALCOHOL [Interacting]
     Dosage: UNK

REACTIONS (4)
  - AGGRESSION [None]
  - ALCOHOL INTERACTION [None]
  - MEMORY IMPAIRMENT [None]
  - PERSONALITY CHANGE [None]
